FAERS Safety Report 21687446 (Version 3)
Quarter: 2023Q1

REPORT INFORMATION
  Report Type: Report from Study
  Country: US (occurrence: US)
  Receive Date: 20221206
  Receipt Date: 20230312
  Transmission Date: 20230418
  Serious: No
  Sender: FDA-Public Use
  Company Number: US-002147023-NVSC2022US243014

PATIENT
  Sex: Male

DRUGS (1)
  1. ENTRESTO [Suspect]
     Active Substance: SACUBITRIL\VALSARTAN
     Indication: Product used for unknown indication
     Dosage: 100 MG, BID, (49/51 MG: SACUBITRIL 48.6MG, VALSARTAN 51.4MG)
     Route: 048
     Dates: start: 202209

REACTIONS (2)
  - Weight increased [Recovering/Resolving]
  - Blood pressure increased [Unknown]
